FAERS Safety Report 20590478 (Version 2)
Quarter: 2022Q3

REPORT INFORMATION
  Report Type: Spontaneous
  Country: IT (occurrence: IT)
  Receive Date: 20220314
  Receipt Date: 20220714
  Transmission Date: 20221026
  Serious: Yes (Other)
  Sender: FDA-Public Use
  Company Number: IT-NOVARTISPH-NVSC2022IT057579

PATIENT
  Age: 16 Year
  Sex: Male

DRUGS (4)
  1. OLANZAPINE [Suspect]
     Active Substance: OLANZAPINE
     Indication: Social avoidant behaviour
     Dosage: UNK
     Route: 065
  2. OLANZAPINE [Suspect]
     Active Substance: OLANZAPINE
     Indication: Aggression
  3. LITHIUM [Suspect]
     Active Substance: LITHIUM
     Indication: Social avoidant behaviour
     Dosage: UNK
     Route: 065
  4. LITHIUM [Suspect]
     Active Substance: LITHIUM
     Indication: Aggression

REACTIONS (3)
  - Weight increased [Unknown]
  - Product use issue [Unknown]
  - Therapy non-responder [Unknown]
